FAERS Safety Report 7714553-9 (Version None)
Quarter: 2011Q3

REPORT INFORMATION
  Report Type: 
  Country: None (occurrence: None)
  Receive Date: 20110804
  Receipt Date: 20110601
  Transmission Date: 20111222
  Serious: No
  Sender: FDA-Public Use
  Company Number: 2011-07628

PATIENT
  Age: 83 Year
  Sex: Male
  Weight: 102 kg

DRUGS (3)
  1. RAPAFLO [Suspect]
     Indication: POLLAKIURIA
     Dosage: ONE CAPSULE DAILY, ORAL ; ONE CAPSULE DAILY, ORAL
     Route: 048
     Dates: start: 20110531, end: 20110531
  2. RAPAFLO [Suspect]
     Indication: POLLAKIURIA
     Dosage: ONE CAPSULE DAILY, ORAL ; ONE CAPSULE DAILY, ORAL
     Route: 048
     Dates: start: 20110601
  3. AVODART [Concomitant]

REACTIONS (2)
  - DRUG INEFFECTIVE [None]
  - POLLAKIURIA [None]
